FAERS Safety Report 6773109-5 (Version None)
Quarter: 2010Q2

REPORT INFORMATION
  Report Type: 
  Country: None (occurrence: None)
  Receive Date: 20100616
  Receipt Date: 20100607
  Transmission Date: 20101027
  Serious: Yes (Death, Other)
  Sender: FDA-Public Use
  Company Number: US-ELI_LILLY_AND_COMPANY-US201004000870

PATIENT
  Age: 60 Year
  Sex: Female
  Weight: 65.714 kg

DRUGS (1)
  1. EVISTA [Suspect]
     Indication: OSTEOPOROSIS
     Dosage: 60 MG, DAILY (1/D)
     Dates: end: 20091117

REACTIONS (3)
  - BREAST CANCER [None]
  - DIZZINESS [None]
  - HEPATIC CANCER METASTATIC [None]
